FAERS Safety Report 7178728-2 (Version None)
Quarter: 2010Q4

REPORT INFORMATION
  Report Type: 
  Country: None (occurrence: None)
  Receive Date: 20101221
  Receipt Date: 20101215
  Transmission Date: 20110411
  Serious: Yes (Death, Hospitalization, Other)
  Sender: FDA-Public Use
  Company Number: US-AMGEN-USASP2010006247

PATIENT

DRUGS (8)
  1. NPLATE [Suspect]
     Indication: IDIOPATHIC THROMBOCYTOPENIC PURPURA
     Dosage: 6 A?G/KG, QWK
     Route: 058
     Dates: start: 20100625, end: 20100917
  2. HYDROCHLOROTHIAZIDE [Concomitant]
     Dosage: 25 MG, QD
     Route: 048
  3. LEVOXYL [Concomitant]
     Dosage: 0.2 MG, QD
     Route: 048
  4. LASIX [Concomitant]
     Dosage: 20 MG, BID
     Route: 048
  5. ALDACTONE [Concomitant]
     Dosage: 25 MG, QD
  6. PRILOSEC [Concomitant]
     Dosage: 20 MG, QD
     Route: 048
  7. NYSTATIN [Concomitant]
  8. LAXATIVE [Suspect]
     Indication: CONSTIPATION

REACTIONS (18)
  - ABDOMINAL DISTENSION [None]
  - ASCITES [None]
  - ASTHENIA [None]
  - ATELECTASIS [None]
  - CARDIOMEGALY [None]
  - CONSTIPATION [None]
  - COUGH [None]
  - DIVERTICULUM INTESTINAL [None]
  - HEPATIC CIRRHOSIS [None]
  - HYPOTENSION [None]
  - LIVER DISORDER [None]
  - PERICARDIAL EFFUSION [None]
  - PLEURAL EFFUSION [None]
  - PORTAL HYPERTENSION [None]
  - PULMONARY HYPERTENSION [None]
  - RENAL CELL CARCINOMA [None]
  - SPLENOMEGALY [None]
  - TRICUSPID VALVE INCOMPETENCE [None]
